FAERS Safety Report 4356127-6 (Version None)
Quarter: 2004Q2

REPORT INFORMATION
  Report Type: 
  Country: None (occurrence: None)
  Receive Date: 20040511
  Receipt Date: 20040413
  Transmission Date: 20050107
  Serious: Yes (Hospitalization)
  Sender: FDA-Public Use
  Company Number: PHRM2004FR01507

PATIENT
  Age: 60 Year
  Sex: Female

DRUGS (4)
  1. PARLODEL [Suspect]
     Dosage: 2.5 DF/DAY
     Route: 048
  2. TANAKAN [Suspect]
     Dosage: 2 DF/DAY
     Route: 048
  3. LANZOR [Suspect]
     Dosage: 1 DF, ONCE/SINGLE
     Route: 048
     Dates: start: 20021121, end: 20021121
  4. NSAID'S [Concomitant]
     Indication: SCIATICA
     Route: 065

REACTIONS (8)
  - DIARRHOEA [None]
  - HAEMATOCHEZIA [None]
  - HAEMORRHOIDS [None]
  - HYPERSENSITIVITY [None]
  - PRURITUS [None]
  - SCIATICA [None]
  - URTICARIA GENERALISED [None]
  - VOMITING [None]
